FAERS Safety Report 23038180 (Version 2)
Quarter: 2024Q3

REPORT INFORMATION
  Report Type: Report from Study
  Country: KR (occurrence: KR)
  Receive Date: 20231006
  Receipt Date: 20240828
  Transmission Date: 20241017
  Serious: Yes (Hospitalization, Other)
  Sender: VIVUS
  Company Number: KR-LOTUS-2022-LOTUS-049553

PATIENT
  Age: 42 Year
  Sex: Female

DRUGS (14)
  1. QSYMIA [Suspect]
     Active Substance: PHENTERMINE HYDROCHLORIDE\TOPIRAMATE
     Indication: Obesity
     Dosage: 15MG/92MG
     Route: 048
     Dates: start: 20220324, end: 20221002
  2. QSYMIA [Suspect]
     Active Substance: PHENTERMINE HYDROCHLORIDE\TOPIRAMATE
     Dosage: 11.25MG/69MG
     Route: 048
     Dates: start: 20220310, end: 20220323
  3. QSYMIA [Suspect]
     Active Substance: PHENTERMINE HYDROCHLORIDE\TOPIRAMATE
     Dosage: 7.5MG/46MG
     Route: 048
     Dates: start: 20211221, end: 20220309
  4. QSYMIA [Suspect]
     Active Substance: PHENTERMINE HYDROCHLORIDE\TOPIRAMATE
     Dosage: 3.75MG/23MG
     Route: 048
     Dates: start: 20211207, end: 20211220
  5. ATORVASTATIN CALCIUM [Concomitant]
     Active Substance: ATORVASTATIN CALCIUM
     Indication: Hyperlipidaemia
     Route: 048
     Dates: start: 20200810
  6. XIGDUO XR [Concomitant]
     Active Substance: DAPAGLIFLOZIN PROPANEDIOL\METFORMIN HYDROCHLORIDE
     Indication: Product used for unknown indication
     Route: 048
     Dates: start: 20200810, end: 20210429
  7. DAPAGLIFLOZIN [Concomitant]
     Active Substance: DAPAGLIFLOZIN
     Indication: Product used for unknown indication
     Route: 048
     Dates: start: 20210430, end: 20210810
  8. Vaccinium Myrtillus Ext [Concomitant]
     Indication: Product used for unknown indication
     Route: 048
     Dates: start: 20201119, end: 20211220
  9. YAMATETAN [Concomitant]
     Indication: Product used for unknown indication
     Route: 042
     Dates: start: 20221012, end: 20221013
  10. CYTOTEC [Concomitant]
     Active Substance: MISOPROSTOL
     Indication: Product used for unknown indication
     Route: 048
     Dates: start: 20221013
  11. FENTANYL CITRATE [Concomitant]
     Active Substance: FENTANYL CITRATE
     Indication: Product used for unknown indication
     Dosage: VIAL 2ML, 0.1MG AS FLUID MIX
     Route: 065
     Dates: start: 20221013
  12. MIDAZOLAM [Concomitant]
     Active Substance: MIDAZOLAM
     Indication: Product used for unknown indication
     Dosage: 5MG/5ML
     Route: 042
  13. Flunil [Concomitant]
     Indication: Product used for unknown indication
     Route: 042
     Dates: start: 20221013
  14. M.V.H [Concomitant]
     Indication: Adverse event
     Dosage: FLUID MIX
     Route: 065
     Dates: start: 20221013

REACTIONS (1)
  - Abortion missed [Unknown]

NARRATIVE: CASE EVENT DATE: 20221012
